FAERS Safety Report 11916552 (Version 2)
Quarter: 2016Q1

REPORT INFORMATION
  Report Type: Report from Study
  Country: CA (occurrence: CA)
  Receive Date: 20160114
  Receipt Date: 20160115
  Transmission Date: 20160526
  Serious: Yes (Other)
  Sender: FDA-Public Use
  Company Number: CA-ABBVIE-16K-028-1537604-00

PATIENT
  Sex: Female

DRUGS (1)
  1. HUMIRA [Suspect]
     Active Substance: ADALIMUMAB
     Indication: CROHN^S DISEASE
     Route: 058
     Dates: start: 20101025

REACTIONS (3)
  - Abortion spontaneous [Unknown]
  - Exposure during pregnancy [Unknown]
  - Foetal death [Unknown]

NARRATIVE: CASE EVENT DATE: 2015
